FAERS Safety Report 5643398-9 (Version None)
Quarter: 2008Q1

REPORT INFORMATION
  Report Type: 
  Country: None (occurrence: None)
  Receive Date: 20080131
  Receipt Date: 20071008
  Transmission Date: 20080703
  Serious: Yes (Hospitalization, Other)
  Sender: FDA-Public Use
  Company Number: 163-21880-07100460

PATIENT
  Age: 49 Year
  Sex: Male

DRUGS (11)
  1. REVLIMID [Suspect]
     Indication: MULTIPLE MYELOMA
     Dosage: 15 MG, DAILY 21/28, ORAL
     Route: 048
     Dates: start: 20070503, end: 20071004
  2. ZOLOFT [Concomitant]
  3. NORVASC [Concomitant]
  4. LOPRESSOR [Concomitant]
  5. DYAZIDE [Concomitant]
  6. ASPIRIN [Concomitant]
  7. NEURONTIN [Concomitant]
  8. PREDNISONE TAB [Concomitant]
  9. BACTRIM [Concomitant]
  10. PRILOSEC [Concomitant]
  11. RISPERDAL [Concomitant]

REACTIONS (3)
  - DIZZINESS [None]
  - PYREXIA [None]
  - SYNCOPE [None]
